FAERS Safety Report 4560216-0 (Version None)
Quarter: 2005Q1

REPORT INFORMATION
  Report Type: 
  Country: None (occurrence: None)
  Receive Date: 20050120
  Receipt Date: 20050120
  Transmission Date: 20050727
  Serious: No
  Sender: FDA-Public Use
  Company Number: None

PATIENT
  Sex: Male
  Weight: 74.8435 kg

DRUGS (2)
  1. CELEBREX [Suspect]
     Indication: PANCREATIC CARCINOMA
     Dosage: 800 MG BID PO
     Route: 048
     Dates: start: 20040426, end: 20041004
  2. XELODA [Concomitant]

REACTIONS (1)
  - CEREBROVASCULAR ACCIDENT [None]
